FAERS Safety Report 25395560 (Version 1)
Quarter: 2025Q2

REPORT INFORMATION
  Report Type: Spontaneous
  Country: US (occurrence: US)
  Receive Date: 20250604
  Receipt Date: 20250604
  Transmission Date: 20250717
  Serious: Yes (Death, Other)
  Sender: AMGEN
  Company Number: US-AMGEN-USASP2025104906

PATIENT
  Age: 54 Year
  Sex: Female

DRUGS (6)
  1. TRASTUZUMAB [Suspect]
     Active Substance: TRASTUZUMAB
     Indication: Cholangiocarcinoma
     Route: 065
  2. PERTUZUMAB [Suspect]
     Active Substance: PERTUZUMAB
     Indication: Cholangiocarcinoma
     Route: 065
  3. INSULIN NOS [Concomitant]
     Active Substance: INSULIN NOS
     Indication: Diabetes mellitus
     Route: 065
  4. GEMCITABINE [Concomitant]
     Active Substance: GEMCITABINE
  5. CISPLATIN [Concomitant]
     Active Substance: CISPLATIN
     Route: 065
  6. DURVALUMAB [Concomitant]
     Active Substance: DURVALUMAB
     Route: 065

REACTIONS (5)
  - Death [Fatal]
  - Metastases to central nervous system [Unknown]
  - Shock [Unknown]
  - General physical health deterioration [Unknown]
  - Off label use [Unknown]

NARRATIVE: CASE EVENT DATE: 20240201
